FAERS Safety Report 8488154-1 (Version None)
Quarter: 2012Q3

REPORT INFORMATION
  Report Type: 
  Country: None (occurrence: None)
  Receive Date: 20120705
  Receipt Date: 20120702
  Transmission Date: 20120928
  Serious: Yes (Other)
  Sender: FDA-Public Use
  Company Number: PHHY2012DE056888

PATIENT
  Sex: Male

DRUGS (3)
  1. FORMOTEROL FUMARATE [Suspect]
     Indication: CHRONIC OBSTRUCTIVE PULMONARY DISEASE
  2. BETA BLOCKING AGENTS [Concomitant]
     Dates: end: 20110101
  3. ONBREZ [Concomitant]
     Dosage: UNK
     Dates: start: 20110101

REACTIONS (1)
  - VENTRICULAR EXTRASYSTOLES [None]
